FAERS Safety Report 9417907 (Version 1)
Quarter: 2013Q3

REPORT INFORMATION
  Report Type: Spontaneous
  Country: US (occurrence: US)
  Receive Date: 20130724
  Receipt Date: 20130724
  Transmission Date: 20140515
  Serious: No
  Sender: FDA-Public Use
  Company Number: US-BAUSCH-BL-2013-001371

PATIENT
  Age: 26 Year
  Sex: Male

DRUGS (1)
  1. OPCON-A [Suspect]
     Indication: OCULAR HYPERAEMIA
     Dosage: 1 DROP IN EACH EYE; ONCE DAILY;OPHTHALMIC
     Route: 047
     Dates: start: 201302, end: 201302

REACTIONS (2)
  - Superficial injury of eye [Unknown]
  - Ocular discomfort [Unknown]
